FAERS Safety Report 6842167-1 (Version None)
Quarter: 2010Q3

REPORT INFORMATION
  Report Type: 
  Country: None (occurrence: None)
  Receive Date: 20100714
  Receipt Date: 20070822
  Transmission Date: 20110219
  Serious: No
  Sender: FDA-Public Use
  Company Number: US-PFIZER INC-2007060389

PATIENT
  Sex: Male
  Weight: 86.2 kg

DRUGS (11)
  1. CHANTIX [Suspect]
     Indication: SMOKING CESSATION THERAPY
     Dates: start: 20070707
  2. CHANTIX [Suspect]
     Indication: TOBACCO USER
  3. ZYRTEC [Concomitant]
  4. CLONAZEPAM [Concomitant]
  5. SERZONE [Concomitant]
     Indication: PSYCHIATRIC SYMPTOM
  6. KLONOPIN [Concomitant]
  7. ZOLPIDEM TARTRATE [Concomitant]
     Indication: INSOMNIA
  8. TRAZODONE HYDROCHLORIDE [Concomitant]
  9. ALBUTEROL [Concomitant]
  10. OXCARBAZEPINE [Concomitant]
  11. PRILOSEC [Concomitant]

REACTIONS (6)
  - ABNORMAL DREAMS [None]
  - BACK PAIN [None]
  - FLUID RETENTION [None]
  - POLYDIPSIA [None]
  - THIRST [None]
  - WEIGHT INCREASED [None]
